FAERS Safety Report 6547550-X (Version None)
Quarter: 2010Q1

REPORT INFORMATION
  Report Type: 
  Country: None (occurrence: None)
  Receive Date: 20100122
  Receipt Date: 20100111
  Transmission Date: 20100710
  Serious: Yes (Hospitalization)
  Sender: FDA-Public Use
  Company Number: PHHY2009TH40703

PATIENT
  Age: 59 Year
  Sex: Female

DRUGS (9)
  1. CYCLOSPORINE [Suspect]
     Indication: RENAL TRANSPLANT
     Dosage: 150 MG, UNK
  2. MYCOPHENOLATE MOFETIL [Interacting]
     Indication: RENAL TRANSPLANT
     Dosage: 1 G, UNK
  3. PREDNISOLONE [Interacting]
     Indication: RENAL TRANSPLANT
     Dosage: 2.5 MG, UNK
  4. LEVETIRACETAM [Concomitant]
     Dosage: 400 MG, UNK
  5. QUETIAPINE [Concomitant]
     Dosage: 25 MG, UNK
  6. SERTRALINE HCL [Concomitant]
     Dosage: 50 MG, UNK
  7. CLOPIDOGREL [Concomitant]
  8. FOLIC ACID [Concomitant]
  9. TACROLIMUS [Concomitant]

REACTIONS (13)
  - AKINESIA [None]
  - ATAXIA [None]
  - BRADYKINESIA [None]
  - DRUG INTERACTION [None]
  - GAIT DISTURBANCE [None]
  - HYPOMAGNESAEMIA [None]
  - MUSCLE RIGIDITY [None]
  - MYOCLONUS [None]
  - PARKINSONISM [None]
  - STUPOR [None]
  - TORTICOLLIS [None]
  - TOXIC ENCEPHALOPATHY [None]
  - TREMOR [None]
